FAERS Safety Report 12109539 (Version 1)
Quarter: 2016Q1

REPORT INFORMATION
  Report Type: Other
  Country: GB (occurrence: GB)
  Receive Date: 20160224
  Receipt Date: 20160224
  Transmission Date: 20160526
  Serious: Yes (Other)
  Sender: FDA-Public Use
  Company Number: GB-CIPLA LTD.-2016GB01360

PATIENT

DRUGS (5)
  1. ZOMIG [Concomitant]
     Active Substance: ZOLMITRIPTAN
     Indication: MIGRAINE
     Dosage: ONE AT THE TIME OF MIGRAINE (AS SOON AS STARTS) AS NECESSARY
     Route: 065
     Dates: start: 20150915
  2. TOPIRAMATE. [Suspect]
     Active Substance: TOPIRAMATE
     Indication: MIGRAINE
     Dosage: UNK
     Route: 065
     Dates: start: 20150403
  3. LANSOPRAZOLE. [Concomitant]
     Active Substance: LANSOPRAZOLE
     Dosage: 1 DF, QD IN THE MORNING
     Route: 065
     Dates: start: 20150915
  4. CO-DYDRAMOL [Concomitant]
     Active Substance: ACETAMINOPHEN\DIHYDROCODEINE
     Dosage: ONE OR TWO TO BE TAKEN FOUR TIMES DAILY AS NECESSARY
     Route: 065
     Dates: start: 20150915
  5. SULFASALAZINE. [Concomitant]
     Active Substance: SULFASALAZINE
     Dosage: 1 G, QD TWO TABLETS
     Route: 065
     Dates: start: 20150915

REACTIONS (4)
  - Drug ineffective [Unknown]
  - Mood altered [Recovered/Resolved]
  - Migraine [Unknown]
  - Suicidal ideation [Recovered/Resolved]

NARRATIVE: CASE EVENT DATE: 20150901
